FAERS Safety Report 8261113-X (Version None)
Quarter: 2012Q2

REPORT INFORMATION
  Report Type: 
  Country: None (occurrence: None)
  Receive Date: 20120405
  Receipt Date: 20120329
  Transmission Date: 20120825
  Serious: Yes (Other)
  Sender: FDA-Public Use
  Company Number: PHEH2012US005783

PATIENT
  Sex: Female
  Weight: 61.36 kg

DRUGS (12)
  1. MOBIC [Concomitant]
     Dosage: 15 MG, QD
     Route: 048
  2. COENZYME A [Concomitant]
     Dosage: 10 MG, UNK
  3. COENZYME Q10 [Concomitant]
     Dosage: UNK MG, QD (30 MG)
     Route: 048
  4. ERYTHROMYCIN BASE [Concomitant]
  5. RECLAST [Suspect]
     Indication: OSTEOPOROSIS
     Dosage: 5 MG, ONCE YEAR
     Route: 042
     Dates: start: 20120123
  6. VITAMIN D [Concomitant]
     Dosage: 1000 U, QD
     Route: 048
  7. VITAMIN B-12 [Concomitant]
     Dosage: TAB QD (500 MCG)
     Route: 048
  8. VITAMIN D [Concomitant]
     Dosage: TAB QD (1000)
     Route: 048
  9. CALCIUM CARBONATE [Concomitant]
  10. MULTI-VITAMINS [Concomitant]
     Dosage: TAB QD
     Route: 048
  11. CALCIUM WITH VITAMIN D [Concomitant]
     Dosage: MG QD TAB (CALCIUM 500 / VITAMIN D 500-400)
     Route: 048
  12. GLUCOSAMINE W/CHONDROITIN [Concomitant]
     Dosage: TAB QD
     Route: 048

REACTIONS (16)
  - VOMITING [None]
  - CHEST PAIN [None]
  - CHEST DISCOMFORT [None]
  - BONE PAIN [None]
  - SWELLING FACE [None]
  - ARTHRALGIA [None]
  - OEDEMA PERIPHERAL [None]
  - EYE PAIN [None]
  - CONFUSIONAL STATE [None]
  - HEADACHE [None]
  - TREMOR [None]
  - APHAGIA [None]
  - FATIGUE [None]
  - CHILLS [None]
  - OROPHARYNGEAL PAIN [None]
  - PAIN [None]
